FAERS Safety Report 21487332 (Version 7)
Quarter: 2023Q1

REPORT INFORMATION
  Report Type: Report from Study
  Country: US (occurrence: US)
  Receive Date: 20221020
  Receipt Date: 20230326
  Transmission Date: 20230417
  Serious: Yes (Other)
  Sender: FDA-Public Use
  Company Number: US-NOVARTISTESTPH-NVSC2022US236814

PATIENT
  Age: 84 Year
  Sex: Female

DRUGS (1)
  1. KISQALI [Suspect]
     Active Substance: RIBOCICLIB
     Indication: Product used for unknown indication
     Dosage: 400 MG, QD
     Route: 048
     Dates: start: 20221003

REACTIONS (13)
  - Hepatic cirrhosis [Unknown]
  - Abdominal neoplasm [Unknown]
  - Fall [Unknown]
  - Pain [Unknown]
  - SARS-CoV-2 test positive [Unknown]
  - Renal disorder [Unknown]
  - Musculoskeletal chest pain [Unknown]
  - Hepatic enzyme increased [Unknown]
  - Hepatic enzyme abnormal [Unknown]
  - Constipation [Unknown]
  - Dizziness [Unknown]
  - Alopecia [Unknown]
  - Malaise [Unknown]

NARRATIVE: CASE EVENT DATE: 20221003
